FAERS Safety Report 18603529 (Version 1)
Quarter: 2020Q4

REPORT INFORMATION
  Report Type: Spontaneous
  Country: US (occurrence: US)
  Receive Date: 20201117
  Receipt Date: 20201117
  Transmission Date: 20210114
  Serious: Yes (Death)
  Sender: FDA-Public Use
  Company Number: None

PATIENT
  Age: 7 Decade
  Sex: Male

DRUGS (7)
  1. PIPERACILLIN AND TAZOBACTAM [Suspect]
     Active Substance: PIPERACILLIN SODIUM\TAZOBACTAM SODIUM
  2. PREDNISOLONE. [Suspect]
     Active Substance: PREDNISOLONE
  3. LAMIVUDINE. [Suspect]
     Active Substance: LAMIVUDINE
     Indication: COVID-19
     Dates: start: 2020
  4. COTRIMOXAZOLE [Suspect]
     Active Substance: SULFAMETHOXAZOLE\TRIMETHOPRIM
  5. ABACAVIR. [Suspect]
     Active Substance: ABACAVIR
     Indication: COVID-19
     Dates: start: 2020
  6. AZITHROMYCIN ANHYDROUS. [Suspect]
     Active Substance: AZITHROMYCIN ANHYDROUS
     Indication: COVID-19
     Dates: start: 2020
  7. RALTEGRAVIR. [Suspect]
     Active Substance: RALTEGRAVIR
     Indication: COVID-19
     Dates: start: 2020

REACTIONS (1)
  - Product use in unapproved indication [None]
